FAERS Safety Report 5672556-2 (Version None)
Quarter: 2008Q2

REPORT INFORMATION
  Report Type: 
  Country: None (occurrence: None)
  Receive Date: 20080219
  Receipt Date: 20080104
  Transmission Date: 20081010
  Serious: No
  Sender: FDA-Public Use
  Company Number: TPA2008A00030

PATIENT
  Age: 50 Year
  Sex: Female
  Weight: 53.5244 kg

DRUGS (7)
  1. ROZEREM [Suspect]
     Indication: CIRCADIAN RHYTHM SLEEP DISORDER
     Dosage: 8 MG, QHS, PER ORAL
     Route: 048
     Dates: start: 20071231, end: 20080104
  2. TAMOXIFEN CITRATE [Concomitant]
  3. AVOEX (INTERFERON BETA-1A) (INJECTION) [Concomitant]
  4. MULTIPLE VITAMIN (ERGOCALCIFEROL, ASCORBIC ACID, FOLIC ACID, THIAMINE [Concomitant]
  5. ESTROVEN (VITAMINS NOS, MINERALS NOS) (TABLETS) [Concomitant]
  6. LORATAB (PARACETAMOL, HYDROCODONE BITARTRATE) (TABLETS) [Concomitant]
  7. VALIUM [Concomitant]

REACTIONS (2)
  - INITIAL INSOMNIA [None]
  - INSOMNIA [None]
